FAERS Safety Report 11248191 (Version 1)
Quarter: 2015Q3

REPORT INFORMATION
  Report Type: Spontaneous
  Country: US (occurrence: None)
  Receive Date: 20150707
  Receipt Date: 20150707
  Transmission Date: 20151125
  Serious: Yes (Other)
  Sender: FDA-Public Use
  Company Number: None

PATIENT
  Sex: Female
  Weight: 83.92 kg

DRUGS (3)
  1. VIVELLE DOT [Suspect]
     Active Substance: ESTRADIOL
     Indication: MENOPAUSAL SYMPTOMS
     Dosage: GENERICS TWICE WKLY 0.05MG/24HR PATCH TWICE TRANSDERMAL
     Route: 062
  2. CLIMARA [Concomitant]
     Active Substance: ESTRADIOL
  3. VIVELLE DOT [Suspect]
     Active Substance: ESTRADIOL
     Indication: MENOPAUSE
     Dosage: GENERICS TWICE WKLY 0.05MG/24HR PATCH TWICE TRANSDERMAL
     Route: 062

REACTIONS (2)
  - Drug ineffective [None]
  - Product substitution issue [None]
